FAERS Safety Report 4911919-7 (Version None)
Quarter: 2006Q1

REPORT INFORMATION
  Report Type: 
  Country: None (occurrence: None)
  Receive Date: 20060215
  Receipt Date: 20060202
  Transmission Date: 20060701
  Serious: Yes (Other)
  Sender: FDA-Public Use
  Company Number: ES-BRISTOL-MYERS SQUIBB COMPANY-13275359

PATIENT
  Age: 60 Year
  Sex: Female

DRUGS (1)
  1. ENDOXAN [Suspect]
     Indication: BREAST CANCER
     Route: 042
     Dates: start: 20060201, end: 20060201

REACTIONS (3)
  - CHEST DISCOMFORT [None]
  - COUGH [None]
  - SENSATION OF FOREIGN BODY [None]
